FAERS Safety Report 10287323 (Version 1)
Quarter: 2014Q3

REPORT INFORMATION
  Report Type: Spontaneous
  Country: US (occurrence: None)
  Receive Date: 20140707
  Receipt Date: 20140707
  Transmission Date: 20150326
  Serious: Yes (Other)
  Sender: FDA-Public Use
  Company Number: None

PATIENT
  Age: 52 Year
  Sex: Female
  Weight: 73.7 kg

DRUGS (1)
  1. TRASTUZUMAB EMTANSINE [Suspect]
     Active Substance: ADO-TRASTUZUMAB EMTANSINE
     Indication: BREAST CANCER
     Dosage: 3.6 MG/KG Q3WKS X 17
     Dates: start: 20140425

REACTIONS (4)
  - Cough [None]
  - Dyspnoea [None]
  - Ejection fraction decreased [None]
  - Chest discomfort [None]

NARRATIVE: CASE EVENT DATE: 20140522
